FAERS Safety Report 8240996-3 (Version None)
Quarter: 2012Q1

REPORT INFORMATION
  Report Type: 
  Country: None (occurrence: None)
  Receive Date: 20120328
  Receipt Date: 20120313
  Transmission Date: 20120608
  Serious: No
  Sender: FDA-Public Use
  Company Number: US-ROXANE LABORATORIES, INC.-2012-RO-00859RO

PATIENT
  Sex: Female

DRUGS (2)
  1. FLUTICASONE FUROATE [Suspect]
     Indication: NASAL CONGESTION
     Route: 045
  2. WELLBUTRIN [Concomitant]
     Indication: DEPRESSION

REACTIONS (1)
  - HEADACHE [None]
